FAERS Safety Report 7178876-7 (Version None)
Quarter: 2010Q4

REPORT INFORMATION
  Report Type: 
  Country: None (occurrence: None)
  Receive Date: 20101217
  Receipt Date: 20101217
  Transmission Date: 20110411
  Serious: No
  Sender: FDA-Public Use
  Company Number: None

PATIENT
  Age: 80 Year
  Sex: Female
  Weight: 92.5338 kg

DRUGS (9)
  1. LOSARTAN POTASSIUM [Suspect]
     Indication: DIABETES MELLITUS
     Dosage: ONE TAB DAILY PO
     Route: 048
     Dates: start: 20100823, end: 20101115
  2. LOSARTAN POTASSIUM [Suspect]
     Indication: HYPERTENSION
     Dosage: ONE TAB DAILY PO
     Route: 048
     Dates: start: 20100823, end: 20101115
  3. PLAVIX [Suspect]
  4. LOVASTATIN [Suspect]
  5. INDAPAMIDE [Suspect]
  6. SPIRONOLACTONE [Suspect]
  7. LEVOTHYROXINE SODIUM [Suspect]
  8. OMEPRAZOLE [Concomitant]
  9. FERROUS SULFATE TAB [Suspect]

REACTIONS (1)
  - MUSCLE SPASMS [None]
